FAERS Safety Report 6970904-4 (Version None)
Quarter: 2010Q3

REPORT INFORMATION
  Report Type: 
  Country: None (occurrence: None)
  Receive Date: 20100824
  Receipt Date: 20091201
  Transmission Date: 20110219
  Serious: Yes (Other)
  Sender: FDA-Public Use
  Company Number: 2009297174

PATIENT
  Age: 56 Year
  Sex: Male
  Weight: 113 kg

DRUGS (6)
  1. NORVASC [Suspect]
     Indication: CHEST PAIN
     Dosage: 5 MG, 1X/DAY
  2. NORVASC [Suspect]
     Indication: HYPERTENSION
     Dosage: 5 MG, 1X/DAY
  3. NORVASC [Suspect]
     Indication: PALPITATIONS
     Dosage: 5 MG, 1X/DAY
  4. AMLODIPINE BESYLATE [Suspect]
     Indication: CHEST PAIN
     Dates: start: 20090101, end: 20091001
  5. AMLODIPINE BESYLATE [Suspect]
     Indication: HYPERTENSION
     Dates: start: 20090101, end: 20091001
  6. AMLODIPINE BESYLATE [Suspect]
     Indication: PALPITATIONS
     Dates: start: 20090101, end: 20091001

REACTIONS (3)
  - BACK PAIN [None]
  - BLOOD CHOLESTEROL INCREASED [None]
  - MEMORY IMPAIRMENT [None]
